FAERS Safety Report 7649451-2 (Version None)
Quarter: 2011Q3

REPORT INFORMATION
  Report Type: 
  Country: None (occurrence: None)
  Receive Date: 20110727
  Receipt Date: 20110718
  Transmission Date: 20111222
  Serious: Yes (Hospitalization)
  Sender: FDA-Public Use
  Company Number: 2011SP000371

PATIENT
  Age: 26 Year
  Sex: Female
  Weight: 61.2356 kg

DRUGS (1)
  1. NUVARING [Suspect]
     Indication: CONTRACEPTION
     Dates: start: 20050829, end: 20060509

REACTIONS (14)
  - VARICOSE VEIN [None]
  - LIGAMENT SPRAIN [None]
  - DYSPLASIA [None]
  - CORNEAL ABRASION [None]
  - FIBRIN D DIMER INCREASED [None]
  - HAEMATOMA [None]
  - HAEMANGIOMA [None]
  - ANKLE FRACTURE [None]
  - PAIN IN EXTREMITY [None]
  - SWELLING [None]
  - HYPOTHYROIDISM [None]
  - PULMONARY EMBOLISM [None]
  - PULMONARY INFARCTION [None]
  - IRON DEFICIENCY ANAEMIA [None]
